FAERS Safety Report 14612353 (Version 5)
Quarter: 2021Q1

REPORT INFORMATION
  Report Type: Spontaneous
  Country: US (occurrence: US)
  Receive Date: 20180308
  Receipt Date: 20210203
  Transmission Date: 20210419
  Serious: Yes (Hospitalization)
  Sender: FDA-Public Use
  Company Number: US-PFIZER INC-2018091743

PATIENT
  Age: 54 Year
  Sex: Female

DRUGS (2)
  1. METHOTREXATE SODIUM. [Suspect]
     Active Substance: METHOTREXATE SODIUM
     Dosage: UNK, (INCREASED TO 7/WEEK)
     Dates: start: 201411, end: 20171011
  2. METHOTREXATE SODIUM. [Suspect]
     Active Substance: METHOTREXATE SODIUM
     Dosage: UNK
     Dates: start: 201406

REACTIONS (6)
  - Hepatic steatosis [Unknown]
  - Liver function test increased [Unknown]
  - Hepatic function abnormal [Unknown]
  - Upper respiratory tract infection [Unknown]
  - Depression [Unknown]
  - Herpes zoster [Unknown]

NARRATIVE: CASE EVENT DATE: 201409
